FAERS Safety Report 5351371-3 (Version None)
Quarter: 2007Q2

REPORT INFORMATION
  Report Type: 
  Country: None (occurrence: None)
  Receive Date: 20070608
  Receipt Date: 20070531
  Transmission Date: 20071010
  Serious: Yes (Other)
  Sender: FDA-Public Use
  Company Number: TR-PFIZER INC-2007045502

PATIENT
  Sex: Female

DRUGS (2)
  1. PREGABALIN [Suspect]
     Indication: NEURALGIA
     Route: 048
  2. DICLOFENAC POTASSIUM [Concomitant]

REACTIONS (3)
  - HYPERTENSION [None]
  - HYPOTENSION [None]
  - SPEECH DISORDER [None]
